FAERS Safety Report 12703255 (Version 3)
Quarter: 2016Q3

REPORT INFORMATION
  Report Type: Spontaneous
  Country: JP (occurrence: JP)
  Receive Date: 20160831
  Receipt Date: 20160906
  Transmission Date: 20161109
  Serious: Yes (Hospitalization)
  Sender: FDA-Public Use
  Company Number: JP-B.I. PHARMACEUTICALS,INC./RIDGEFIELD-2016-BI-56220NB

PATIENT
  Age: 44 Year
  Sex: Female

DRUGS (3)
  1. REGNITE [Concomitant]
     Active Substance: GABAPENTIN ENACARBIL
     Indication: RESTLESS LEGS SYNDROME
     Dosage: 300 MG
     Route: 048
  2. BI-SIFROL [Suspect]
     Active Substance: PRAMIPEXOLE
     Indication: RESTLESS LEGS SYNDROME
     Dosage: 0.625 MG
     Route: 048
  3. BI-SIFROL [Suspect]
     Active Substance: PRAMIPEXOLE
     Dosage: 0.75 MG
     Route: 048
     Dates: start: 201604

REACTIONS (2)
  - Unevaluable event [Unknown]
  - Menstruation irregular [Not Recovered/Not Resolved]

NARRATIVE: CASE EVENT DATE: 201509
